FAERS Safety Report 5148268-0 (Version None)
Quarter: 2006Q4

REPORT INFORMATION
  Report Type: 
  Country: None (occurrence: None)
  Receive Date: 20061107
  Receipt Date: 20061020
  Transmission Date: 20070319
  Serious: Yes (Death)
  Sender: FDA-Public Use
  Company Number: ADE06022-L

PATIENT

DRUGS (4)
  1. CYCLOSPORINE [Suspect]
     Indication: PROPHYLAXIS AGAINST TRANSPLANT REJECTION
     Dosage: 10-15M/KG/DAY, DIVIDED TAPERED 3,700-900 NG/ML
  2. METHYLPREDNISOLONE [Concomitant]
  3. PREDNISONE TAB [Concomitant]
  4. AZATHIOPRINE [Concomitant]

REACTIONS (1)
  - INFECTION [None]
